FAERS Safety Report 22270371 (Version 9)
Quarter: 2023Q4

REPORT INFORMATION
  Report Type: Spontaneous
  Country: US (occurrence: US)
  Receive Date: 20230501
  Receipt Date: 20231025
  Transmission Date: 20240109
  Serious: No
  Sender: FDA-Public Use
  Company Number: US-AMGEN-USASP2023072945

PATIENT
  Age: 68 Year
  Sex: Female

DRUGS (3)
  1. TAVNEOS [Suspect]
     Active Substance: AVACOPAN
     Indication: Arteritis
     Dosage: 30 MILLIGRAM, BID, TAKE 3 CAPSULES (30 MG) BY MOUTH TWICE DAILY WITH FOOD
     Route: 048
     Dates: start: 20230418
  2. TAVNEOS [Suspect]
     Active Substance: AVACOPAN
     Indication: Off label use
     Dosage: 30 MILLIGRAM, BID (TAKE 3 CAPSULES (30 MG) BY MOUTH TWICE DAILY WITH FOOD)
     Route: 048
  3. TAVNEOS [Suspect]
     Active Substance: AVACOPAN
     Dosage: 30 MILLIGRAM, BID
     Route: 048
     Dates: end: 20230608

REACTIONS (12)
  - Feeling abnormal [Unknown]
  - Localised infection [Unknown]
  - Feeding disorder [Unknown]
  - Decreased appetite [Unknown]
  - COVID-19 [Recovered/Resolved]
  - Intentional product misuse [Unknown]
  - Pain in extremity [Unknown]
  - Diarrhoea [Unknown]
  - Vomiting [Unknown]
  - Dizziness [Unknown]
  - Nausea [Unknown]
  - Off label use [Unknown]

NARRATIVE: CASE EVENT DATE: 20230101
